FAERS Safety Report 13113343 (Version 1)
Quarter: 2017Q1

REPORT INFORMATION
  Report Type: Report from Study
  Country: US (occurrence: US)
  Receive Date: 20170113
  Receipt Date: 20170113
  Transmission Date: 20170428
  Serious: Yes (Other)
  Sender: FDA-Public Use
  Company Number: US-PFIZER INC-2017012742

PATIENT
  Age: 57 Year
  Sex: Female

DRUGS (2)
  1. DILANTIN [Suspect]
     Active Substance: PHENYTOIN
     Dosage: UNK
  2. HUMIRA [Interacting]
     Active Substance: ADALIMUMAB
     Indication: PSORIASIS
     Dosage: 40 MG, UNK (1 IN 2 WK)
     Route: 058
     Dates: start: 201310

REACTIONS (3)
  - Seizure [Recovered/Resolved]
  - Drug level decreased [Unknown]
  - Drug interaction [Recovered/Resolved]
